FAERS Safety Report 24167281 (Version 1)
Quarter: 2024Q3

REPORT INFORMATION
  Report Type: Spontaneous
  Country: GB (occurrence: GB)
  Receive Date: 20240802
  Receipt Date: 20240802
  Transmission Date: 20241016
  Serious: Yes (Other)
  Sender: TEVA
  Company Number: None

PATIENT
  Age: 79 Year

DRUGS (8)
  1. CLARITHROMYCIN [Suspect]
     Active Substance: CLARITHROMYCIN
     Route: 065
     Dates: start: 20240307, end: 20240312
  2. AMOXICILLIN [Concomitant]
     Active Substance: AMOXICILLIN
     Dosage: TIME INTERVAL: 0.33333333 DAYS: 21 CAPSULE
  3. GLYCERIN [Concomitant]
     Active Substance: GLYCERIN
     Dosage: TWICE A DAY
     Route: 054
  4. OMEPRAZOLE [Concomitant]
     Active Substance: OMEPRAZOLE
  5. VENLAFAXINE [Concomitant]
     Active Substance: VENLAFAXINE HYDROCHLORIDE
     Dosage: MODIFIED-RELEASE CAPSULES
  6. EDOXABAN [Concomitant]
     Active Substance: EDOXABAN
     Dosage: PES 49KG CR 83 - ECRCL 45ML/MIN
  7. DOCUSATE [Concomitant]
     Active Substance: DOCUSATE
  8. LOPERAMIDE [Concomitant]
     Active Substance: LOPERAMIDE

REACTIONS (1)
  - Electrocardiogram QT prolonged [Unknown]
